FAERS Safety Report 15050143 (Version 2)
Quarter: 2018Q3

REPORT INFORMATION
  Report Type: Spontaneous
  Country: KR (occurrence: KR)
  Receive Date: 20180622
  Receipt Date: 20180706
  Transmission Date: 20181010
  Serious: No
  Sender: FDA-Public Use
  Company Number: KR-009507513-1806KOR009633

PATIENT
  Sex: Female

DRUGS (1)
  1. DESOGESTREL (+) ETHINYL ESTRADIOL [Suspect]
     Active Substance: DESOGESTREL\ETHINYL ESTRADIOL
     Indication: PRODUCT USED FOR UNKNOWN INDICATION
     Dosage: UNK , QD (TABLET DAILY)
     Route: 048

REACTIONS (2)
  - Dizziness [Unknown]
  - Somnolence [Unknown]
